FAERS Safety Report 10878761 (Version 1)
Quarter: 2015Q1

REPORT INFORMATION
  Report Type: Spontaneous
  Country: US (occurrence: US)
  Receive Date: 20150302
  Receipt Date: 20150302
  Transmission Date: 20150721
  Serious: No
  Sender: FDA-Public Use
  Company Number: US-ASTRAZENECA-2015SE17014

PATIENT
  Age: 27951 Day
  Sex: Female
  Weight: 48.1 kg

DRUGS (3)
  1. FASLODEX [Suspect]
     Active Substance: FULVESTRANT
     Indication: METASTASES TO LIVER
     Route: 030
     Dates: start: 20141217
  2. BABY ASPIRIN [Concomitant]
     Active Substance: ASPIRIN
     Route: 048
  3. FASLODEX [Suspect]
     Active Substance: FULVESTRANT
     Indication: BREAST CANCER FEMALE
     Route: 030
     Dates: start: 20141217

REACTIONS (4)
  - Body height decreased [Unknown]
  - Feeling hot [Unknown]
  - Hypoaesthesia [Not Recovered/Not Resolved]
  - Perineal pain [Unknown]

NARRATIVE: CASE EVENT DATE: 20141217
